FAERS Safety Report 7704692-0 (Version None)
Quarter: 2011Q3

REPORT INFORMATION
  Report Type: 
  Country: None (occurrence: None)
  Receive Date: 20110823
  Receipt Date: 20110627
  Transmission Date: 20111222
  Serious: Yes (Other)
  Sender: FDA-Public Use
  Company Number: US-ASTRAZENECA-2011SE38739

PATIENT
  Age: 68 Year

DRUGS (10)
  1. OMEPRAZOLE [Suspect]
     Route: 048
  2. SIMVASTATIN [Concomitant]
  3. ABILIFY [Concomitant]
  4. LISINOPRIL [Suspect]
     Route: 048
  5. XANAX [Concomitant]
  6. HYDROCODONE BITARTRATE [Concomitant]
  7. METFORMIN HCL [Concomitant]
  8. SEROQUEL [Suspect]
     Route: 048
  9. LAMOTRIGINE [Concomitant]
  10. GABAPENTIN [Concomitant]

REACTIONS (5)
  - SUICIDAL IDEATION [None]
  - DRUG DOSE OMISSION [None]
  - STRESS FRACTURE [None]
  - MENTAL DISORDER [None]
  - STRESS [None]
